FAERS Safety Report 5584848-6 (Version None)
Quarter: 2008Q1

REPORT INFORMATION
  Report Type: 
  Country: None (occurrence: None)
  Receive Date: 20080104
  Receipt Date: 20071221
  Transmission Date: 20080703
  Serious: Yes (Death)
  Sender: FDA-Public Use
  Company Number: 2007-0011

PATIENT
  Age: 40 Year
  Sex: Female

DRUGS (4)
  1. DOXEPIN HCL [Suspect]
     Indication: DEPRESSION
  2. AMPHETAMINE [Concomitant]
  3. CANNABIS [Concomitant]
  4. BENZODIAZEPINE [Concomitant]

REACTIONS (4)
  - ALCOHOL USE [None]
  - DRUG TOXICITY [None]
  - HAEMATOTOXICITY [None]
  - INTENTIONAL DRUG MISUSE [None]
